FAERS Safety Report 6287992-3 (Version None)
Quarter: 2009Q3

REPORT INFORMATION
  Report Type: 
  Country: None (occurrence: None)
  Receive Date: 20090729
  Receipt Date: 20090720
  Transmission Date: 20100115
  Serious: Yes (Hospitalization)
  Sender: FDA-Public Use
  Company Number: FR-AMGEN-US353853

PATIENT
  Sex: Female

DRUGS (6)
  1. ENBREL [Suspect]
     Indication: RHEUMATOID ARTHRITIS
     Dosage: 50 MG TOTAL WEEKLY
     Route: 058
     Dates: start: 20031017, end: 20080908
  2. METHOTREXATE [Suspect]
     Indication: RHEUMATOID ARTHRITIS
     Dosage: 10 MG TOTAL WEEKLY
     Route: 048
     Dates: start: 20040202, end: 20080908
  3. NEXIUM [Concomitant]
     Route: 048
  4. DAFALGAN [Concomitant]
     Dosage: 3 G TOTAL DAILY
     Route: 048
  5. DETENSIEL [Concomitant]
     Route: 048
  6. CORTANCYL [Concomitant]
     Dosage: 10 MG TOTAL DAILY
     Route: 048
     Dates: start: 20030204

REACTIONS (2)
  - LUNG ADENOCARCINOMA METASTATIC [None]
  - PULMONARY TUBERCULOSIS [None]
